FAERS Safety Report 9332530 (Version 1)
Quarter: 2013Q2

REPORT INFORMATION
  Report Type: Spontaneous
  Country: GB (occurrence: GB)
  Receive Date: 20130603
  Receipt Date: 20130603
  Transmission Date: 20140414
  Serious: Yes (Life-Threatening, Hospitalization, Other)
  Sender: FDA-Public Use
  Company Number: 1728765

PATIENT
  Age: 59 Year
  Sex: Female
  Weight: 99.6 kg

DRUGS (5)
  1. VINCRISTINE SULFATE [Suspect]
     Indication: NON-HODGKIN^S LYMPHOMA UNSPECIFIED HISTOLOGY INDOLENT
     Route: 040
     Dates: start: 20120312
  2. DOXORUBICIN HYDROCHLORIDE [Suspect]
     Indication: NON-HODGKIN^S LYMPHOMA UNSPECIFIED HISTOLOGY INDOLENT
     Route: 040
     Dates: start: 20120312
  3. INVESTIGATIONAL DRUG [Suspect]
     Indication: NON-HODGKIN^S LYMPHOMA
     Route: 040
     Dates: start: 20120312
  4. CYCLOPHOSPHAMIDE [Suspect]
     Indication: NON-HODGKIN^S LYMPHOMA UNSPECIFIED HISTOLOGY INDOLENT
     Route: 042
     Dates: start: 20120312
  5. PREDNISOLONE [Suspect]
     Indication: NON-HODGKIN^S LYMPHOMA UNSPECIFIED HISTOLOGY INDOLENT
     Route: 048
     Dates: start: 20120312

REACTIONS (4)
  - Neutropenia [None]
  - Febrile neutropenia [None]
  - Infection [None]
  - Staphylococcal infection [None]
